FAERS Safety Report 9045505 (Version 1)
Quarter: 2013Q1

REPORT INFORMATION
  Report Type: Spontaneous
  Country: PL (occurrence: PL)
  Receive Date: 20130131
  Receipt Date: 20130131
  Transmission Date: 20140127
  Serious: Yes (Other)
  Sender: FDA-Public Use
  Company Number: PHHY2013PL007632

PATIENT
  Sex: Female
  Weight: 3.1 kg

DRUGS (2)
  1. CICLOSPORIN [Suspect]
     Dosage: MATERNAL DOSE: 25-50 MG,
     Route: 064
  2. PREDNISOLONE [Suspect]
     Dosage: MATERNAL DOSE:  25 MG SINGLE DOSE
     Route: 064

REACTIONS (3)
  - Tachycardia foetal [Recovered/Resolved]
  - Jaundice neonatal [Recovered/Resolved]
  - Foetal exposure during pregnancy [Unknown]
